FAERS Safety Report 8484262-X (Version None)
Quarter: 2012Q2

REPORT INFORMATION
  Report Type: 
  Country: None (occurrence: None)
  Receive Date: 20120625
  Receipt Date: 20120608
  Transmission Date: 20120825
  Serious: Yes (Other)
  Sender: FDA-Public Use
  Company Number: 2012-000700

PATIENT
  Age: 85 Year
  Sex: Female

DRUGS (23)
  1. EFFEXOR XR [Concomitant]
  2. ACETAMINOPHEN W/ CODEINE [Concomitant]
  3. ACETAMINOPHEN W/ PROPOXYPHENE HCL [Concomitant]
  4. BEXTRA /01400702/ (PARECOXIB SODIUM) [Concomitant]
  5. DICYCLOMINE /00068601/ (DICYCLOVERINE) [Concomitant]
  6. ACTONEL [Suspect]
     Dosage: 35 MG ONCE WEEKLY, ORAL
     Route: 048
     Dates: start: 20020831, end: 20100802
  7. AMOXICILLIN [Concomitant]
  8. NEURONTIN [Concomitant]
  9. OXYCODONE AND ACETAMINOPHEN [Concomitant]
  10. FUROSEMIDE [Concomitant]
  11. KLOR-CON [Concomitant]
  12. NORVASC [Concomitant]
  13. AVALIDE [Concomitant]
  14. VALTREX [Concomitant]
  15. TRICOR /00090101/ (ADENOSINE) [Concomitant]
  16. MOBIC [Concomitant]
  17. PROAIR HFA (SALBUTAMOL SULFATE) [Concomitant]
  18. ESTRACE [Concomitant]
  19. VIOXX [Concomitant]
  20. PRILOSEC [Concomitant]
  21. METFFORMIN HYDROCHLORIDE [Concomitant]
  22. DETROL LA [Concomitant]
  23. ACTOS [Concomitant]

REACTIONS (5)
  - FALL [None]
  - ATROPHY [None]
  - FRACTURE MALUNION [None]
  - DEVICE FAILURE [None]
  - FEMUR FRACTURE [None]
